FAERS Safety Report 16661725 (Version 2)
Quarter: 2019Q3

REPORT INFORMATION
  Report Type: Spontaneous
  Country: US (occurrence: US)
  Receive Date: 20190802
  Receipt Date: 20190920
  Transmission Date: 20191004
  Serious: Yes (Death)
  Sender: FDA-Public Use
  Company Number: US-IMPAX LABORATORIES, LLC-2019-IPXL-01544

PATIENT
  Age: 83 Year
  Sex: Male

DRUGS (1)
  1. RYTARY [Suspect]
     Active Substance: CARBIDOPA\LEVODOPA
     Indication: PARKINSON^S DISEASE
     Dosage: 1 CAPSULES TID
     Route: 048

REACTIONS (5)
  - Parkinson^s disease [Fatal]
  - Memory impairment [Unknown]
  - Muscle disorder [Unknown]
  - Dyspnoea [Unknown]
  - Aspiration [Unknown]

NARRATIVE: CASE EVENT DATE: 201811
